FAERS Safety Report 6184053-9 (Version None)
Quarter: 2009Q2

REPORT INFORMATION
  Report Type: 
  Country: None (occurrence: None)
  Receive Date: 20090508
  Receipt Date: 20090213
  Transmission Date: 20091009
  Serious: No
  Sender: FDA-Public Use
  Company Number: A0769350A

PATIENT
  Age: 69 Year
  Sex: Female

DRUGS (1)
  1. HYCAMTIN [Suspect]
     Indication: DRUG USE FOR UNKNOWN INDICATION
     Dosage: 3MGD PER DAY
     Route: 048
     Dates: start: 20090204

REACTIONS (2)
  - DIARRHOEA [None]
  - NAUSEA [None]
